FAERS Safety Report 5240766-4 (Version None)
Quarter: 2007Q1

REPORT INFORMATION
  Report Type: 
  Country: None (occurrence: None)
  Receive Date: 20061208
  Receipt Date: 20050805
  Transmission Date: 20070707
  Serious: Yes (Other)
  Sender: FDA-Public Use
  Company Number: 2005UW11634

PATIENT
  Age: 67 Year
  Sex: Male
  Weight: 56.245 kg

DRUGS (5)
  1. CRESTOR [Suspect]
     Indication: BLOOD CHOLESTEROL INCREASED
     Dosage: 10 MG QD PO
     Route: 048
  2. PREVACID [Concomitant]
  3. DOXAZOSIN MESYLATE [Concomitant]
  4. LISINOPRIL [Concomitant]
  5. ASPIRIN [Concomitant]

REACTIONS (3)
  - FEELING COLD [None]
  - HYPOAESTHESIA [None]
  - PAIN [None]
